FAERS Safety Report 25999256 (Version 1)
Quarter: 2025Q4

REPORT INFORMATION
  Report Type: Spontaneous
  Country: IR (occurrence: IR)
  Receive Date: 20251105
  Receipt Date: 20251105
  Transmission Date: 20260117
  Serious: Yes (Hospitalization, Other)
  Sender: XELLIA PHARMACEUTICALS
  Company Number: IR-Axellia-005673

PATIENT
  Age: 54 Year
  Sex: Male

DRUGS (2)
  1. COLISTIMETHATE SODIUM [Suspect]
     Active Substance: COLISTIMETHATE SODIUM
     Indication: Bacterial infection
     Dosage: 4.5MU Q12H
  2. MEROPENEM [Suspect]
     Active Substance: MEROPENEM
     Indication: Bacterial infection
     Dosage: 2 G Q8H

REACTIONS (1)
  - Nephropathy toxic [Recovered/Resolved]
